FAERS Safety Report 6720156-5 (Version None)
Quarter: 2010Q2

REPORT INFORMATION
  Report Type: 
  Country: None (occurrence: None)
  Receive Date: 20100511
  Receipt Date: 20100304
  Transmission Date: 20101027
  Serious: No
  Sender: FDA-Public Use
  Company Number: US-BAYER-201015702NA

PATIENT
  Sex: Female

DRUGS (2)
  1. GENERIC SOTALOL [Suspect]
     Indication: ATRIAL FIBRILLATION
     Route: 048
  2. GENERIC SOTALOL [Suspect]
     Route: 048

REACTIONS (1)
  - ATRIAL FIBRILLATION [None]
